FAERS Safety Report 25714851 (Version 1)
Quarter: 2025Q3

REPORT INFORMATION
  Report Type: Spontaneous
  Country: EU (occurrence: EU)
  Receive Date: 20250822
  Receipt Date: 20250822
  Transmission Date: 20251021
  Serious: Yes (Other)
  Sender: ABBVIE
  Company Number: EU-ABBVIE-6425793

PATIENT
  Sex: Female

DRUGS (1)
  1. MIRVETUXIMAB SORAVTANSINE [Suspect]
     Active Substance: MIRVETUXIMAB SORAVTANSINE
     Indication: Ovarian cancer
     Route: 042

REACTIONS (2)
  - Disease progression [Unknown]
  - Abdominal pain [Unknown]
